FAERS Safety Report 7672702-5 (Version None)
Quarter: 2011Q3

REPORT INFORMATION
  Report Type: 
  Country: None (occurrence: None)
  Receive Date: 20110809
  Receipt Date: 20110805
  Transmission Date: 20111222
  Serious: Yes (Other)
  Sender: FDA-Public Use
  Company Number: GXKR2011DE02155

PATIENT
  Age: 28 Year
  Sex: Female
  Weight: 94 kg

DRUGS (4)
  1. ALPRAZOLAM [Concomitant]
     Indication: ANXIETY DISORDER
     Dosage: 0.25 MG (ONLY TWO TIME BETWEEN GW 6 AND GW 22)
     Route: 048
     Dates: start: 20090527
  2. FOLIC ACID [Concomitant]
     Indication: PROPHYLAXIS OF NEURAL TUBE DEFECT
     Dosage: 0.4 MG, QD (GW 6 TO GW 12)
     Route: 048
  3. PAROXETINE HCL [Suspect]
     Indication: ANXIETY DISORDER
     Dosage: 10 MG, QD (UNTIL GW 6)
     Route: 048
  4. CITALOPRAM HYDROBROMIDE [Suspect]
     Indication: DEPRESSION
     Dosage: 15 MG, QD (GW 22-40))
     Route: 048

REACTIONS (4)
  - OEDEMA [None]
  - HYPERTENSION [None]
  - PRE-ECLAMPSIA [None]
  - MATERNAL EXPOSURE DURING PREGNANCY [None]
